FAERS Safety Report 6358642-2 (Version None)
Quarter: 2009Q3

REPORT INFORMATION
  Report Type: 
  Country: None (occurrence: None)
  Receive Date: 20090916
  Receipt Date: 20090623
  Transmission Date: 20100115
  Serious: No
  Sender: FDA-Public Use
  Company Number: US-ABBOTT-09P-163-0581737-00

PATIENT
  Sex: Female
  Weight: 74.456 kg

DRUGS (4)
  1. TRILIPIX [Suspect]
     Indication: BLOOD CHOLESTEROL INCREASED
     Dates: start: 20090531, end: 20090621
  2. ZETIA [Concomitant]
     Indication: DRUG USE FOR UNKNOWN INDICATION
  3. ON NATURAL BIOIDENTICAL CREAMS [Concomitant]
     Indication: DRUG USE FOR UNKNOWN INDICATION
  4. LEXAPRO [Concomitant]
     Indication: DRUG USE FOR UNKNOWN INDICATION

REACTIONS (6)
  - ARTHRALGIA [None]
  - CONTUSION [None]
  - EYE HAEMORRHAGE [None]
  - FALL [None]
  - MUSCLE ATROPHY [None]
  - MUSCULAR WEAKNESS [None]
